FAERS Safety Report 24074136 (Version 1)
Quarter: 2024Q3

REPORT INFORMATION
  Report Type: Spontaneous
  Country: CN (occurrence: None)
  Receive Date: 20240710
  Receipt Date: 20240710
  Transmission Date: 20241016
  Serious: Yes (Other)
  Sender: ASTRAZENECA
  Company Number: 2024A153044

PATIENT
  Age: 17 Year
  Sex: Female
  Weight: 41.8 kg

DRUGS (1)
  1. SELUMETINIB SULFATE [Suspect]
     Active Substance: SELUMETINIB SULFATE
     Indication: Neoplasm
     Route: 048
     Dates: start: 20240504, end: 20240619

REACTIONS (1)
  - Blood creatine phosphokinase increased [Recovered/Resolved]

NARRATIVE: CASE EVENT DATE: 20240618
